FAERS Safety Report 6456832-1 (Version None)
Quarter: 2009Q4

REPORT INFORMATION
  Report Type: 
  Country: None (occurrence: None)
  Receive Date: 20091125
  Receipt Date: 20091119
  Transmission Date: 20100525
  Serious: Yes (Death)
  Sender: FDA-Public Use
  Company Number: JP-NOVOPROD-301019

PATIENT
  Age: 87 Year
  Sex: Male

DRUGS (1)
  1. NOVOSEVEN [Suspect]
     Indication: TRAUMATIC HAEMORRHAGE
     Dosage: 4.8 MG, BID
     Route: 042
     Dates: start: 20091110, end: 20091110

REACTIONS (2)
  - INTRA-ABDOMINAL HAEMORRHAGE [None]
  - PLEURAL HAEMORRHAGE [None]
